FAERS Safety Report 10890458 (Version 1)
Quarter: 2015Q1

REPORT INFORMATION
  Report Type: Spontaneous
  Country: US (occurrence: US)
  Receive Date: 20150305
  Receipt Date: 20150305
  Transmission Date: 20150721
  Serious: Yes (Other)
  Sender: FDA-Public Use
  Company Number: US-MALLINCKRODT-T201501365

PATIENT
  Age: 2 Day

DRUGS (1)
  1. OPTIRAY [Suspect]
     Active Substance: IOVERSOL
     Indication: CATHETERISATION CARDIAC
     Dosage: CUMULATIVE 9.7 ML/KG
     Route: 065

REACTIONS (1)
  - Post procedural hypothyroidism [Recovered/Resolved]
